FAERS Safety Report 17796247 (Version 1)
Quarter: 2020Q2

REPORT INFORMATION
  Report Type: Spontaneous
  Country: RU (occurrence: RU)
  Receive Date: 20200517
  Receipt Date: 20200517
  Transmission Date: 20200714
  Serious: Yes (Life-Threatening, Hospitalization)
  Sender: FDA-Public Use
  Company Number: NVSC2020RU133755

PATIENT
  Age: 31 Year
  Sex: Male

DRUGS (1)
  1. VOLTAREN [Suspect]
     Active Substance: DICLOFENAC SODIUM
     Indication: SUICIDE ATTEMPT
     Dosage: UNK,10 TABLETS ALL AT ONCE
     Route: 048
     Dates: start: 20200316, end: 20200316

REACTIONS (4)
  - Product use in unapproved indication [Unknown]
  - Intentional overdose [Unknown]
  - Wound haemorrhage [Unknown]
  - Pain [Unknown]

NARRATIVE: CASE EVENT DATE: 20200316
